FAERS Safety Report 5788994-3 (Version None)
Quarter: 2008Q2

REPORT INFORMATION
  Report Type: 
  Country: None (occurrence: None)
  Receive Date: 20080625
  Receipt Date: 20080625
  Transmission Date: 20081010
  Serious: Yes (Hospitalization)
  Sender: FDA-Public Use
  Company Number: None

PATIENT
  Sex: Male
  Weight: 78 kg

DRUGS (9)
  1. RAPTIVA [Suspect]
     Indication: RENAL TRANSPLANT
     Dosage: 76 MG Q WEEK SQ
     Route: 058
     Dates: start: 20080318
  2. CELLCEPT [Concomitant]
  3. GLYBURIDE [Concomitant]
  4. PREDNISONE TAB [Concomitant]
  5. LOPRESSOR [Concomitant]
  6. PRAVASTATIN [Concomitant]
  7. PROCARDIA [Concomitant]
  8. NPH ILETIN II [Concomitant]
  9. PEPCID [Concomitant]

REACTIONS (1)
  - ABDOMINAL PAIN UPPER [None]
